FAERS Safety Report 8901830 (Version 1)
Quarter: 2012Q4

REPORT INFORMATION
  Report Type: Spontaneous
  Country: US (occurrence: None)
  Receive Date: 20121106
  Receipt Date: 20121106
  Transmission Date: 20130627
  Serious: Yes (Other)
  Sender: FDA-Public Use
  Company Number: E2B_00000448

PATIENT
  Age: 69 Year
  Sex: Male
  Weight: 74.39 kg

DRUGS (3)
  1. LISINOPRIL [Suspect]
     Indication: HYPERTENSION
     Route: 048
     Dates: start: 2006, end: 2010
  2. LISINOPRIL [Suspect]
     Indication: HYPERTENSION
     Dosage: (5 mg, 1 in 1 D)
     Route: 048
     Dates: start: 2010, end: 2011
  3. LISINOPRIL [Suspect]
     Indication: HYPERTENSION
     Dosage: (10 mg, 1 in 1 D)
     Route: 048
     Dates: start: 2011

REACTIONS (10)
  - Drug ineffective [None]
  - Dizziness [None]
  - Fall [None]
  - Protein urine present [None]
  - Nephrolithiasis [None]
  - Testicular cyst [None]
  - Nervousness [None]
  - Weight decreased [None]
  - Self-medication [None]
  - Wrong technique in drug usage process [None]
